FAERS Safety Report 8235836-2 (Version None)
Quarter: 2012Q1

REPORT INFORMATION
  Report Type: 
  Country: None (occurrence: None)
  Receive Date: 20120326
  Receipt Date: 20120316
  Transmission Date: 20120608
  Serious: Yes (Hospitalization)
  Sender: FDA-Public Use
  Company Number: US-ELI_LILLY_AND_COMPANY-US201202007931

PATIENT
  Sex: Female

DRUGS (15)
  1. ADVAIR DISKUS 100/50 [Concomitant]
  2. LEXAPRO [Concomitant]
  3. LYRICA [Concomitant]
     Dosage: UNK
     Dates: end: 20120219
  4. MS CONTIN [Concomitant]
  5. SINGULAIR [Concomitant]
     Dosage: UNK
     Dates: end: 20120219
  6. FORTEO [Suspect]
     Dosage: 20 UG, UNKNOWN
     Dates: start: 20110520
  7. XYZAL [Concomitant]
  8. MIRAPEX [Concomitant]
  9. CELEBREX [Concomitant]
     Dosage: UNK
     Dates: end: 20120219
  10. NEXIUM [Concomitant]
     Dosage: UNK
     Dates: end: 20120219
  11. MILK OF MAGNESIA TAB [Concomitant]
  12. CARAFATE [Concomitant]
  13. FAMCICLOVIR [Concomitant]
  14. POTASSIUM [Concomitant]
  15. FORTEO [Suspect]
     Dosage: 20 UG, UNKNOWN
     Dates: end: 20120201

REACTIONS (18)
  - ABDOMINAL PAIN UPPER [None]
  - ARTHRALGIA [None]
  - DRUG DOSE OMISSION [None]
  - ANXIETY [None]
  - VOMITING [None]
  - EYE DISORDER [None]
  - VISUAL IMPAIRMENT [None]
  - EYE DISCHARGE [None]
  - INSOMNIA [None]
  - DIARRHOEA [None]
  - MALAISE [None]
  - FATIGUE [None]
  - MENTAL IMPAIRMENT [None]
  - DIZZINESS [None]
  - NAUSEA [None]
  - PAIN [None]
  - KERATITIS [None]
  - RETCHING [None]
